FAERS Safety Report 6549751-3 (Version None)
Quarter: 2010Q1

REPORT INFORMATION
  Report Type: 
  Country: None (occurrence: None)
  Receive Date: 20100125
  Receipt Date: 20100121
  Transmission Date: 20100710
  Serious: Yes (Death)
  Sender: FDA-Public Use
  Company Number: NL-MPIJNJ-2010-00929

PATIENT

DRUGS (3)
  1. VELCADE [Suspect]
     Indication: DRUG USE FOR UNKNOWN INDICATION
     Route: 065
  2. DEXAMETHASONE [Concomitant]
  3. PROTON PUMP INHIBITORS [Concomitant]

REACTIONS (1)
  - GASTROINTESTINAL ISCHAEMIA [None]
